FAERS Safety Report 6125958-4 (Version None)
Quarter: 2009Q1

REPORT INFORMATION
  Report Type: 
  Country: None (occurrence: None)
  Receive Date: 20090320
  Receipt Date: 20090310
  Transmission Date: 20090719
  Serious: Yes (Hospitalization)
  Sender: FDA-Public Use
  Company Number: GB-AMGEN-QUU337869

PATIENT
  Sex: Male

DRUGS (4)
  1. NEULASTA [Suspect]
     Indication: CHEMOTHERAPY
     Route: 065
     Dates: start: 20090303
  2. EPIRUBICIN [Concomitant]
     Dates: start: 20090302
  3. OXALIPLATIN [Concomitant]
     Dates: start: 20090302
  4. CAPECITABINE [Concomitant]
     Dates: start: 20090302

REACTIONS (1)
  - NEUTROPENIA [None]
